FAERS Safety Report 4486998-4 (Version None)
Quarter: 2004Q4

REPORT INFORMATION
  Report Type: 
  Country: None (occurrence: None)
  Receive Date: 20041022
  Receipt Date: 20041012
  Transmission Date: 20050328
  Serious: Yes (Other)
  Sender: FDA-Public Use
  Company Number: 2004239474FR

PATIENT
  Sex: Male

DRUGS (1)
  1. XALATAN [Suspect]
     Indication: OCULAR HYPERTENSION
     Dosage: OPHTHALMIC
     Route: 047

REACTIONS (4)
  - CHOROIDAL DETACHMENT [None]
  - DISEASE RECURRENCE [None]
  - EPISCLERITIS [None]
  - EYE INFLAMMATION [None]
